FAERS Safety Report 21803636 (Version 1)
Quarter: 2023Q1

REPORT INFORMATION
  Report Type: Spontaneous
  Country: PT (occurrence: PT)
  Receive Date: 20230102
  Receipt Date: 20230102
  Transmission Date: 20230418
  Serious: Yes (Hospitalization)
  Sender: FDA-Public Use
  Company Number: PT-SLATE RUN PHARMACEUTICALS-22PT001456

PATIENT

DRUGS (5)
  1. ESOMEPRAZOLE SODIUM [Suspect]
     Active Substance: ESOMEPRAZOLE SODIUM
     Indication: Chronic gastritis
     Dosage: 40 MILLIGRAM, QD
  2. LEFLUNOMIDE [Concomitant]
     Active Substance: LEFLUNOMIDE
     Indication: Chronic gastritis
     Dosage: 10 MILLIGRAM, QD
  3. DEFLAZACORT [Concomitant]
     Active Substance: DEFLAZACORT
     Indication: Chronic gastritis
     Dosage: 6 MILLIGRAM, QD
  4. CARVEDILOL [Concomitant]
     Active Substance: CARVEDILOL
     Indication: Chronic gastritis
     Dosage: 25 MILLIGRAM, BID
  5. SPIRONOLACTONE [Concomitant]
     Active Substance: SPIRONOLACTONE
     Indication: Chronic gastritis
     Dosage: 12.5 MILLIGRAM, QD

REACTIONS (3)
  - Diarrhoea infectious [Recovered/Resolved]
  - Hypomagnesaemia [Recovered/Resolved]
  - Mucosal dryness [Unknown]
